FAERS Safety Report 16646905 (Version 1)
Quarter: 2019Q3

REPORT INFORMATION
  Report Type: Spontaneous
  Country: GB (occurrence: GB)
  Receive Date: 20190730
  Receipt Date: 20190730
  Transmission Date: 20191004
  Serious: Yes (Life-Threatening, Hospitalization, Other)
  Sender: FDA-Public Use
  Company Number: GB-PFIZER INC-2019319072

PATIENT
  Age: 58 Year
  Sex: Female
  Weight: 68.2 kg

DRUGS (4)
  1. ROCURONIUM BROMIDE. [Suspect]
     Active Substance: ROCURONIUM BROMIDE
     Indication: SEDATION
     Dosage: 100MG/10ML
  2. PROPRANOLOL [Concomitant]
     Active Substance: PROPRANOLOL HYDROCHLORIDE
     Dosage: 80 MG, 1X/DAY (MODIFIED RELEASE)
     Dates: start: 20190429
  3. PARACETAMOL [Concomitant]
     Active Substance: ACETAMINOPHEN
     Dosage: UNK
  4. CODEINE [Concomitant]
     Active Substance: CODEINE
     Dosage: 1-2 TIMES A DAY WITH PARACETAMOL
     Dates: start: 20190429

REACTIONS (3)
  - Acute myocardial infarction [Unknown]
  - Blood pressure decreased [Unknown]
  - Cardiac arrest [Recovering/Resolving]

NARRATIVE: CASE EVENT DATE: 20190607
